FAERS Safety Report 4851787-5 (Version None)
Quarter: 2005Q4

REPORT INFORMATION
  Report Type: 
  Country: None (occurrence: None)
  Receive Date: 20051209
  Receipt Date: 20051124
  Transmission Date: 20060501
  Serious: Yes (Other)
  Sender: FDA-Public Use
  Company Number: 12931

PATIENT
  Age: 56 Year
  Sex: Female

DRUGS (6)
  1. CARBOPLATIN [Suspect]
     Dates: start: 20050119, end: 20050119
  2. RANITIDINE [Concomitant]
  3. DEXAMETHASONE [Concomitant]
  4. DOLASETRON [Concomitant]
  5. PACLITAXEL [Concomitant]
  6. CARBOPLATIN [Concomitant]

REACTIONS (4)
  - COUGH [None]
  - DYSPNOEA [None]
  - FLUSHING [None]
  - INFUSION RELATED REACTION [None]
